FAERS Safety Report 18341492 (Version 1)
Quarter: 2020Q4

REPORT INFORMATION
  Report Type: Report from Study
  Country: IT (occurrence: IT)
  Receive Date: 20201004
  Receipt Date: 20201004
  Transmission Date: 20210113
  Serious: Yes (Hospitalization)
  Sender: FDA-Public Use
  Company Number: IT-TEVA-2020-IT-1834395

PATIENT
  Age: 83 Year
  Sex: Female

DRUGS (5)
  1. LASIX [Suspect]
     Active Substance: FUROSEMIDE
     Indication: HYPERTENSION
     Dosage: 0.25 DF
     Route: 048
     Dates: start: 20190516
  2. COUMADIN [Concomitant]
     Active Substance: WARFARIN SODIUM
  3. TRIATEC (RAMIPRIL) [Suspect]
     Active Substance: RAMIPRIL
     Indication: HYPERTENSION
     Dosage: 0.5 DF
     Route: 048
     Dates: start: 20190516, end: 20200721
  4. LUVION 50 MG COMPRESSE [Suspect]
     Active Substance: CANRENONE
     Indication: HYPERTENSION
     Dosage: 50 MG
     Route: 048
     Dates: start: 20190516, end: 20200721
  5. BISOPROLOL FUMARATE. [Suspect]
     Active Substance: BISOPROLOL FUMARATE
     Indication: HYPERTENSION
     Dosage: 5 MG
     Route: 048
     Dates: start: 20190516

REACTIONS (5)
  - Acute kidney injury [Recovering/Resolving]
  - Hypochloraemia [Recovering/Resolving]
  - Acidosis [Recovering/Resolving]
  - Hyperkalaemia [Recovering/Resolving]
  - Hyponatraemia [Recovering/Resolving]

NARRATIVE: CASE EVENT DATE: 20200616
